FAERS Safety Report 26151002 (Version 1)
Quarter: 2025Q4

REPORT INFORMATION
  Report Type: Spontaneous
  Country: EU (occurrence: EU)
  Receive Date: 20251212
  Receipt Date: 20251212
  Transmission Date: 20260117
  Serious: Yes (Other)
  Sender: JOHNSON AND JOHNSON
  Company Number: None

PATIENT
  Age: 45 Year
  Sex: Female
  Weight: 55 kg

DRUGS (4)
  1. TREMFYA [Suspect]
     Active Substance: GUSELKUMAB
     Indication: Ankylosing spondylitis
     Route: 058
     Dates: start: 20240415, end: 20250616
  2. TREMFYA [Suspect]
     Active Substance: GUSELKUMAB
  3. TREMFYA [Suspect]
     Active Substance: GUSELKUMAB
  4. METHOTREXATE SODIUM [Suspect]
     Active Substance: METHOTREXATE SODIUM
     Indication: Ankylosing spondylitis
     Route: 048

REACTIONS (1)
  - Hyperthyroidism [Recovered/Resolved with Sequelae]

NARRATIVE: CASE EVENT DATE: 20250111
